FAERS Safety Report 7406995-6 (Version None)
Quarter: 2011Q2

REPORT INFORMATION
  Report Type: 
  Country: None (occurrence: None)
  Receive Date: 20110411
  Receipt Date: 20110405
  Transmission Date: 20111010
  Serious: No
  Sender: FDA-Public Use
  Company Number: US-PFIZER INC-2011075469

PATIENT
  Sex: Female
  Weight: 63.5 kg

DRUGS (5)
  1. LYRICA [Concomitant]
     Indication: FIBROMYALGIA
     Dosage: UNK
  2. PREMARIN [Suspect]
     Dosage: UNK
     Dates: start: 20110403
  3. TRAZODONE [Concomitant]
     Dosage: UNK
  4. AMBIEN [Concomitant]
     Dosage: UNK
  5. PREMARIN [Suspect]
     Indication: OESTROGEN THERAPY
     Dosage: 0.45 MG, 1X/DAY
     Route: 048
     Dates: start: 19930101, end: 20110223

REACTIONS (1)
  - HOT FLUSH [None]
